FAERS Safety Report 10087239 (Version 1)
Quarter: 2014Q2

REPORT INFORMATION
  Report Type: Spontaneous
  Country: HR (occurrence: HR)
  Receive Date: 20140418
  Receipt Date: 20140418
  Transmission Date: 20141212
  Serious: Yes (Other)
  Sender: FDA-Public Use
  Company Number: PHHY2014HR043877

PATIENT
  Age: 64 Year
  Sex: Female

DRUGS (1)
  1. KLIMICIN T [Suspect]
     Indication: UPPER RESPIRATORY TRACT INFLAMMATION
     Route: 048
     Dates: start: 20140115, end: 20140125

REACTIONS (1)
  - Hypoacusis [Not Recovered/Not Resolved]
